FAERS Safety Report 10783751 (Version 5)
Quarter: 2015Q2

REPORT INFORMATION
  Report Type: Spontaneous
  Country: CH (occurrence: CH)
  Receive Date: 20150210
  Receipt Date: 20150428
  Transmission Date: 20150821
  Serious: Yes (Other)
  Sender: FDA-Public Use
  Company Number: CH-ASTELLAS-2015US003510

PATIENT
  Age: 65 Year
  Sex: Female

DRUGS (3)
  1. BETMIGA [Suspect]
     Active Substance: MIRABEGRON
     Route: 048
     Dates: start: 20141214, end: 20141223
  2. VAGIFEM [Concomitant]
     Active Substance: ESTRADIOL
     Indication: ATROPHY
     Dosage: UNK UNK, UNKNOWN FREQ.
     Route: 067
  3. BETMIGA [Suspect]
     Active Substance: MIRABEGRON
     Indication: HYPERTONIC BLADDER
     Route: 048
     Dates: start: 20141017, end: 20141210

REACTIONS (2)
  - Dyspepsia [Recovered/Resolved]
  - Diarrhoea haemorrhagic [Recovered/Resolved]

NARRATIVE: CASE EVENT DATE: 20141201
